FAERS Safety Report 13994488 (Version 1)
Quarter: 2017Q3

REPORT INFORMATION
  Report Type: Spontaneous
  Country: SE (occurrence: SE)
  Receive Date: 20170920
  Receipt Date: 20170920
  Transmission Date: 20171128
  Serious: Yes (Other)
  Sender: FDA-Public Use
  Company Number: SE-MYLANLABS-2017M1057373

PATIENT
  Age: 25 Year
  Sex: Female

DRUGS (7)
  1. DESLORATADIN [Concomitant]
     Active Substance: DESLORATADINE
     Indication: PHARYNGEAL OEDEMA
  2. BETAPRED [Concomitant]
     Active Substance: BETAMETHASONE SODIUM PHOSPHATE
     Indication: PHARYNGEAL OEDEMA
  3. BETAPRED [Concomitant]
     Active Substance: BETAMETHASONE SODIUM PHOSPHATE
     Indication: THROAT IRRITATION
     Dosage: 10 PIECES
  4. BETAPRED [Concomitant]
     Active Substance: BETAMETHASONE SODIUM PHOSPHATE
     Indication: HYPERSENSITIVITY
  5. DESLORATADIN [Concomitant]
     Active Substance: DESLORATADINE
     Indication: THROAT IRRITATION
     Dosage: 1 PIECE
  6. EPIPEN [Suspect]
     Active Substance: EPINEPHRINE
     Indication: HYPERSENSITIVITY
     Dosage: UNK
     Dates: start: 201705
  7. DESLORATADIN [Concomitant]
     Active Substance: DESLORATADINE
     Indication: HYPERSENSITIVITY

REACTIONS (4)
  - Condition aggravated [Unknown]
  - Needle issue [Unknown]
  - Hypersensitivity [Recovered/Resolved]
  - Incorrect dose administered [Unknown]

NARRATIVE: CASE EVENT DATE: 201705
